FAERS Safety Report 9537439 (Version 1)
Quarter: 2013Q3

REPORT INFORMATION
  Report Type: Report from Study
  Country: US (occurrence: US)
  Receive Date: 20130919
  Receipt Date: 20130919
  Transmission Date: 20140515
  Serious: Yes (Hospitalization)
  Sender: FDA-Public Use
  Company Number: US-GLAXOSMITHKLINE-A1040885B

PATIENT
  Age: 59 Year
  Sex: Female
  Weight: 48.6 kg

DRUGS (5)
  1. LAPATINIB [Suspect]
     Indication: TRANSITIONAL CELL CANCER OF THE RENAL PELVIS AND URETER
     Dosage: 1000MG PER DAY
     Route: 048
     Dates: start: 20130722
  2. DOCETAXEL [Suspect]
     Indication: TRANSITIONAL CELL CANCER OF THE RENAL PELVIS AND URETER
     Dosage: 60MGM2 EVERY 3 WEEKS
     Route: 042
     Dates: start: 20130722
  3. GABAPENTIN [Concomitant]
  4. METHADONE [Concomitant]
  5. MEGACE [Concomitant]

REACTIONS (1)
  - Confusional state [Unknown]
